FAERS Safety Report 9693346 (Version 2)
Quarter: 2013Q4

REPORT INFORMATION
  Report Type: Report from Study
  Country: DE (occurrence: DE)
  Receive Date: 20131118
  Receipt Date: 20131118
  Transmission Date: 20140711
  Serious: Yes (Hospitalization, Other)
  Sender: FDA-Public Use
  Company Number: DE-ROCHE-1201468

PATIENT
  Age: 59 Year
  Sex: Male
  Weight: 83 kg

DRUGS (3)
  1. PEG-INTERFERON ALFA 2A [Suspect]
     Indication: CHRONIC HEPATITIS C
     Dosage: LAST DOSE PRIOR TO SAE 23/JAN/2013
     Route: 058
     Dates: start: 20120625, end: 20130123
  2. RIBAVIRIN [Suspect]
     Indication: CHRONIC HEPATITIS C
     Dosage: LAST DOSE PRIOR TO SAE 23/JAN/2013
     Route: 048
     Dates: start: 20120625, end: 20130123
  3. INCIVO [Suspect]
     Indication: CHRONIC HEPATITIS C
     Dosage: LASTO DOSE PRIOR TO SAE 11/SEP/2012
     Route: 048
     Dates: start: 20120625, end: 20120911

REACTIONS (1)
  - Hepatocellular carcinoma [Recovered/Resolved with Sequelae]
